FAERS Safety Report 11985187 (Version 1)
Quarter: 2016Q1

REPORT INFORMATION
  Report Type: Spontaneous
  Country: US (occurrence: US)
  Receive Date: 20160201
  Receipt Date: 20160201
  Transmission Date: 20160526
  Serious: Yes (Hospitalization)
  Sender: FDA-Public Use
  Company Number: US-ALLERGAN-1602042US

PATIENT
  Age: 83 Year
  Sex: Female

DRUGS (1)
  1. DALVANCE [Suspect]
     Active Substance: DALBAVANCIN
     Indication: CELLULITIS
     Dosage: 750 MG, SINGLE
     Route: 042
     Dates: start: 20160115, end: 20160115

REACTIONS (4)
  - Pharyngeal oedema [Recovered/Resolved]
  - Dyspnoea [Recovered/Resolved]
  - Chills [Recovered/Resolved]
  - Eye swelling [Recovered/Resolved]

NARRATIVE: CASE EVENT DATE: 20160115
